FAERS Safety Report 9016697 (Version 2)
Quarter: 2013Q1

REPORT INFORMATION
  Report Type: Spontaneous
  Country: JP (occurrence: JP)
  Receive Date: 20130116
  Receipt Date: 20130206
  Transmission Date: 20140127
  Serious: Yes (Death, Other)
  Sender: FDA-Public Use
  Company Number: JP-BAYER-2013-005278

PATIENT
  Age: 39 Year
  Sex: Male

DRUGS (15)
  1. CIPROXAN [Suspect]
     Dosage: UNK
     Route: 042
  2. VIDARABINE [Suspect]
     Indication: ADENOVIRAL HAEMORRHAGIC CYSTITIS
     Dosage: DAILY DOSE 5 MG
     Route: 042
  3. VIDARABINE [Suspect]
     Indication: VIRAL HAEMORRHAGIC CYSTITIS
  4. CIDOFOVIR [Suspect]
     Indication: VIRAL HAEMORRHAGIC CYSTITIS
  5. FLUDARABINE [Concomitant]
     Indication: ACUTE LYMPHOCYTIC LEUKAEMIA
     Dosage: 30 MG/M2, UNK
     Route: 042
  6. FLUDARABINE [Concomitant]
     Indication: STEM CELL TRANSPLANT
  7. BUSULFAN [Concomitant]
     Indication: ACUTE LYMPHOCYTIC LEUKAEMIA
     Dosage: DAILY DOSE 3.2 MG/KG
     Route: 042
  8. BUSULFAN [Concomitant]
     Indication: STEM CELL TRANSPLANT
  9. METHYLPREDNISOLONE [Concomitant]
     Indication: ACUTE GRAFT VERSUS HOST DISEASE
     Dosage: DAILY DOSE 1 MG/KG
  10. CYCLOSPORINE [Concomitant]
     Indication: PROPHYLAXIS AGAINST GRAFT VERSUS HOST DISEASE
  11. METHOTREXATE [Concomitant]
     Indication: PROPHYLAXIS AGAINST GRAFT VERSUS HOST DISEASE
  12. ACICLOVIR [Concomitant]
     Indication: INFECTION PROPHYLAXIS
     Route: 048
  13. FLUCONAZOLE [Concomitant]
     Indication: INFECTION PROPHYLAXIS
     Route: 048
  14. IMMUNOGLOBULIN [Concomitant]
     Indication: INFECTION PROPHYLAXIS
     Dosage: 500 MG/KG, OW
     Route: 042
  15. GRANULOCYTE COLONY STIMULATING FACTOR [Concomitant]

REACTIONS (3)
  - Drug ineffective for unapproved indication [None]
  - Pneumonia viral [Fatal]
  - Respiratory failure [Fatal]
